FAERS Safety Report 4427748-7 (Version None)
Quarter: 2004Q3

REPORT INFORMATION
  Report Type: 
  Country: None (occurrence: None)
  Receive Date: 20040817
  Receipt Date: 20040804
  Transmission Date: 20050211
  Serious: Yes (Other)
  Sender: FDA-Public Use
  Company Number: IE-GLAXOSMITHKLINE-B0341679A

PATIENT
  Age: 77 Year
  Sex: Male

DRUGS (6)
  1. AVANDAMET [Suspect]
     Indication: DIABETES MELLITUS
     Route: 048
     Dates: start: 20040507, end: 20040510
  2. CARACE [Concomitant]
  3. GLUCOBAY [Concomitant]
  4. CARDURA XL [Concomitant]
  5. NU-SEAL ASPIRIN [Concomitant]
  6. ATENOLOL [Concomitant]

REACTIONS (2)
  - PRURITUS [None]
  - RASH ERYTHEMATOUS [None]
